FAERS Safety Report 6107160-5 (Version None)
Quarter: 2009Q1

REPORT INFORMATION
  Report Type: 
  Country: None (occurrence: None)
  Receive Date: 20090305
  Receipt Date: 20090305
  Transmission Date: 20090719
  Serious: Yes (Other)
  Sender: FDA-Public Use
  Company Number: None

PATIENT
  Age: 69 Year
  Sex: Female
  Weight: 89.8122 kg

DRUGS (1)
  1. VERAPAMIL [Suspect]
     Indication: HYPERTENSION
     Dosage: 240 MG ONCE QD BY MOUTH
     Route: 048
     Dates: start: 20080405, end: 20080424

REACTIONS (3)
  - BLOOD PRESSURE INCREASED [None]
  - DRUG INTOLERANCE [None]
  - SYNCOPE [None]
